FAERS Safety Report 17540845 (Version 1)
Quarter: 2020Q1

REPORT INFORMATION
  Report Type: Spontaneous
  Country: US (occurrence: US)
  Receive Date: 20200313
  Receipt Date: 20200313
  Transmission Date: 20200409
  Serious: No
  Sender: FDA-Public Use
  Company Number: US-TARO-2019TAR00436

PATIENT
  Sex: Female
  Weight: 56.69 kg

DRUGS (9)
  1. VITAMIN B [Concomitant]
     Active Substance: VITAMIN B
  2. GAMMA GLOBULIN [Concomitant]
     Active Substance: IMMUNE GLOBULIN NOS
     Dosage: 2 ML, EVERY 3 WEEKS
  3. MAGNESIUM [Concomitant]
     Active Substance: MAGNESIUM
  4. GLUTATHIONE [Concomitant]
     Active Substance: GLUTATHIONE
  5. GLYCINE. [Concomitant]
     Active Substance: GLYCINE
  6. LAMOTRIGINE TABLETS 150 MG [Suspect]
     Active Substance: LAMOTRIGINE
     Indication: BIPOLAR II DISORDER
     Dosage: 325 MG, 1X/DAY
     Route: 048
     Dates: start: 2005
  7. TRILEPTAL [Concomitant]
     Active Substance: OXCARBAZEPINE
     Dosage: 1250 MG, 1X/DAY AT BEDTIME
  8. VITAMIN C [Concomitant]
     Active Substance: ASCORBIC ACID
  9. MULTIVITAMIN [Concomitant]
     Active Substance: VITAMINS

REACTIONS (5)
  - Epstein-Barr virus infection [Not Recovered/Not Resolved]
  - Bile output decreased [Not Recovered/Not Resolved]
  - Malnutrition [Recovering/Resolving]
  - Off label use [Not Recovered/Not Resolved]
  - Dyspepsia [Not Recovered/Not Resolved]

NARRATIVE: CASE EVENT DATE: 2005
